FAERS Safety Report 20160265 (Version 2)
Quarter: 2021Q4

REPORT INFORMATION
  Report Type: Spontaneous
  Country: PK (occurrence: PK)
  Receive Date: 20211208
  Receipt Date: 20211218
  Transmission Date: 20220303
  Serious: Yes (Death, Hospitalization, Disabling, Other)
  Sender: FDA-Public Use
  Company Number: PK-SA-SAC20211206001300

PATIENT
  Age: 7 Month
  Sex: Male
  Weight: 6 kg

DRUGS (1)
  1. MYOZYME [Suspect]
     Active Substance: ALGLUCOSIDASE ALFA
     Indication: Glycogen storage disease type II

REACTIONS (10)
  - Death [Fatal]
  - Lower respiratory tract infection [Unknown]
  - Hypertrophic cardiomyopathy [Unknown]
  - Sitting disability [Unknown]
  - Respiratory tract infection [Unknown]
  - Motor developmental delay [Unknown]
  - Hypotonia [Unknown]
  - Cardiomegaly [Unknown]
  - Balance disorder [Unknown]
  - Dysphagia [Unknown]
